FAERS Safety Report 19165336 (Version 1)
Quarter: 2021Q2

REPORT INFORMATION
  Report Type: Spontaneous
  Country: US (occurrence: US)
  Receive Date: 20210421
  Receipt Date: 20210421
  Transmission Date: 20210717
  Serious: No
  Sender: FDA-Public Use
  Company Number: US-PFIZER INC-2021206987

PATIENT
  Age: 33 Year
  Sex: Female

DRUGS (1)
  1. DEPO?PROVERA [Suspect]
     Active Substance: MEDROXYPROGESTERONE ACETATE
     Indication: CONTRACEPTION
     Dosage: 104 MG/ 0.65 ML, INJECTION, EVERY 3 MONTHS
     Route: 058

REACTIONS (4)
  - Wrong technique in device usage process [Unknown]
  - Device mechanical issue [Unknown]
  - Device connection issue [Unknown]
  - Drug dose omission by device [Unknown]

NARRATIVE: CASE EVENT DATE: 20210216
